FAERS Safety Report 13444926 (Version 2)
Quarter: 2017Q2

REPORT INFORMATION
  Report Type: Spontaneous
  Country: PL (occurrence: PL)
  Receive Date: 20170414
  Receipt Date: 20170418
  Transmission Date: 20170830
  Serious: Yes (Other)
  Sender: FDA-Public Use
  Company Number: PL-JNJFOC-20170411001

PATIENT
  Age: 7 Month

DRUGS (2)
  1. ZYRTEC [Suspect]
     Active Substance: CETIRIZINE HYDROCHLORIDE
     Route: 048
  2. ZYRTEC [Suspect]
     Active Substance: CETIRIZINE HYDROCHLORIDE
     Indication: PRODUCT USED FOR UNKNOWN INDICATION
     Dosage: 5 DROPS (FOR A DAY)
     Route: 048

REACTIONS (9)
  - Somnolence [Unknown]
  - Pharyngitis [Unknown]
  - Body temperature increased [Unknown]
  - Anxiety [Unknown]
  - Dry mouth [Unknown]
  - Feeling abnormal [Unknown]
  - Dyskinesia [Unknown]
  - Rash [Unknown]
  - Tearfulness [Unknown]
